FAERS Safety Report 22250446 (Version 1)
Quarter: 2023Q2

REPORT INFORMATION
  Report Type: Spontaneous
  Country: US (occurrence: US)
  Receive Date: 20230425
  Receipt Date: 20230425
  Transmission Date: 20230721
  Serious: No
  Sender: FDA-Public Use
  Company Number: US-PFIZER INC-PV202300071381

PATIENT
  Age: 37 Year
  Sex: Female

DRUGS (2)
  1. XELJANZ XR [Suspect]
     Active Substance: TOFACITINIB CITRATE
     Dosage: UNK
  2. MEASLES-MUMPS-RUBELLA VIRUS VACCINE [Concomitant]
     Active Substance: MEASLES-MUMPS-RUBELLA VIRUS VACCINE
     Dosage: SINGLE
     Dates: start: 2022, end: 2022

REACTIONS (10)
  - Weight increased [Unknown]
  - Eating disorder [Unknown]
  - Fatigue [Unknown]
  - Laziness [Unknown]
  - Illness [Not Recovered/Not Resolved]
  - Pyrexia [Unknown]
  - Headache [Unknown]
  - Product dose omission in error [Unknown]
  - Off label use [Unknown]
  - Product use issue [Unknown]

NARRATIVE: CASE EVENT DATE: 20220101
